FAERS Safety Report 26211795 (Version 1)
Quarter: 2025Q4

REPORT INFORMATION
  Report Type: Spontaneous
  Country: EU (occurrence: EU)
  Receive Date: 20251230
  Receipt Date: 20251230
  Transmission Date: 20260118
  Serious: Yes (Other)
  Sender: VIIV
  Company Number: None

PATIENT
  Age: 59 Year
  Sex: Female

DRUGS (4)
  1. DOLUTEGRAVIR [Suspect]
     Active Substance: DOLUTEGRAVIR
     Indication: HIV infection
     Dosage: 50 MG, QD
  2. DORAVIRINE [Suspect]
     Active Substance: DORAVIRINE
     Indication: HIV infection
     Dosage: 100 MG, QD
  3. DORAVIRINE [Suspect]
     Active Substance: DORAVIRINE
     Dosage: 100 MG, BID (100 MG 1 TABLET X 2)
  4. ROSUVASTATIN [Concomitant]
     Active Substance: ROSUVASTATIN
     Indication: Dyslipidaemia
     Dosage: 20 MG, QD
     Route: 065

REACTIONS (2)
  - Ductal adenocarcinoma of pancreas [Unknown]
  - Off label use [Unknown]

NARRATIVE: CASE EVENT DATE: 20250401
